FAERS Safety Report 15994163 (Version 1)
Quarter: 2019Q1

REPORT INFORMATION
  Report Type: Report from Study
  Country: ES (occurrence: ES)
  Receive Date: 20190222
  Receipt Date: 20190222
  Transmission Date: 20190418
  Serious: Yes (Hospitalization)
  Sender: FDA-Public Use
  Company Number: ES-ACCORD-108296

PATIENT
  Age: 96 Year
  Sex: Female

DRUGS (6)
  1. METHYLPREDNISOLONE. [Concomitant]
     Active Substance: METHYLPREDNISOLONE
     Dosage: 40MG CADA 12 HORAS
     Route: 042
     Dates: start: 20170627
  2. TRAMADOL. [Concomitant]
     Active Substance: TRAMADOL
     Dosage: 50MG/6H
     Route: 042
     Dates: start: 20170627, end: 20170630
  3. SALBUTAMOL BEXAL [Concomitant]
     Dosage: 100 MICROGRAMS / DOSE SUSPENSION FOR?INHALATION IN A PRESSURIZED CONTAINER
     Route: 055
     Dates: start: 20170627, end: 20170630
  4. PARACETAMOL [Concomitant]
     Active Substance: ACETAMINOPHEN
     Dosage: 1GR/8H
     Route: 042
     Dates: start: 20170627
  5. FUROSEMIDE. [Suspect]
     Active Substance: FUROSEMIDE
     Indication: PRODUCT USED FOR UNKNOWN INDICATION
     Dosage: 20MG/6H. LAST DATE OF ADMINISTRATION: 30-JUN-2017.
     Route: 042
     Dates: start: 20170627
  6. CEFTRIAXONE. [Concomitant]
     Active Substance: CEFTRIAXONE
     Dosage: 2 GR DAY
     Route: 042
     Dates: start: 20170627

REACTIONS (1)
  - Hyponatraemia [Recovered/Resolved]

NARRATIVE: CASE EVENT DATE: 20170630
